FAERS Safety Report 23225665 (Version 1)
Quarter: 2023Q4

REPORT INFORMATION
  Report Type: Spontaneous
  Country: CA (occurrence: CA)
  Receive Date: 20231124
  Receipt Date: 20231124
  Transmission Date: 20240109
  Serious: Yes (Death)
  Sender: FDA-Public Use
  Company Number: CA-SANDOZ-SDZ2023CA058706

PATIENT
  Sex: Female

DRUGS (2)
  1. CARBOPLATIN [Suspect]
     Active Substance: CARBOPLATIN
     Indication: Vulval cancer metastatic
     Dosage: UNK (SOLUTION INTRAVENOUS)
     Route: 065
  2. PACLITAXEL [Suspect]
     Active Substance: PACLITAXEL
     Indication: Vulval cancer metastatic
     Dosage: UNK (LIQUID INTRAVENOUS )
     Route: 065

REACTIONS (1)
  - Drug ineffective [Fatal]
